FAERS Safety Report 8115194-4 (Version None)
Quarter: 2012Q1

REPORT INFORMATION
  Report Type: 
  Country: None (occurrence: None)
  Receive Date: 20120206
  Receipt Date: 20120130
  Transmission Date: 20120608
  Serious: No
  Sender: FDA-Public Use
  Company Number: US-B.I. PHARMACEUTICALS,INC./RIDGEFIELD-2012-BP-01837BP

PATIENT
  Sex: Male

DRUGS (21)
  1. RISPERIDONE [Concomitant]
     Indication: ANXIETY
     Dosage: 1 MG
     Route: 048
  2. BACLOFEN [Concomitant]
     Indication: PAIN
     Dosage: 40 MG
     Route: 048
  3. SOTALOL HCL [Concomitant]
     Indication: ATRIAL FIBRILLATION
     Dosage: 240 MG
     Route: 048
  4. LORANTIDINE [Concomitant]
     Dosage: 10 MG
     Route: 048
  5. ALLOPURINOL [Concomitant]
     Indication: GOUT
     Dosage: 100 MG
     Route: 048
  6. PRADAXA [Suspect]
     Indication: ATRIAL FIBRILLATION
     Dosage: 300 MG
     Route: 048
     Dates: start: 20111201
  7. AMILORIDE HYDROCHLORIDE [Concomitant]
     Dosage: 5 MG
     Route: 048
  8. TRICOR [Concomitant]
     Route: 048
  9. VICODIN [Concomitant]
     Indication: PAIN
     Route: 048
  10. VALACYCLOVIR [Concomitant]
  11. DILTIAZEM HCL [Concomitant]
     Indication: ATRIAL FIBRILLATION
     Dosage: 90 MG
     Route: 048
  12. GLYBURIDE [Concomitant]
     Indication: DIABETES MELLITUS
     Dosage: 4 MG
     Route: 048
  13. METHIMAZOLE [Concomitant]
     Dosage: 10 MG
     Route: 048
  14. LOVAZA [Concomitant]
     Dosage: 2 G
     Route: 048
  15. REMERON [Concomitant]
     Indication: INSOMNIA
     Dosage: 45 MG
     Route: 048
  16. ASPIRIN [Concomitant]
     Indication: CARDIAC DISORDER
     Route: 048
  17. RANITIDINE [Concomitant]
     Dosage: 300 MG
     Route: 048
  18. DIGOXIN [Concomitant]
     Indication: CARDIAC DISORDER
     Dosage: 0.25 MG
     Route: 048
  19. NIASPAN [Concomitant]
     Dosage: 500 MG
     Route: 048
  20. PLAVIX [Concomitant]
     Indication: CARDIAC DISORDER
     Dosage: 75 MG
     Route: 048
  21. LORAZEPAM [Concomitant]
     Indication: ANXIETY
     Dosage: 4 MG
     Route: 048

REACTIONS (2)
  - ALOPECIA [None]
  - FATIGUE [None]
